FAERS Safety Report 8064326 (Version 3)
Quarter: 2013Q1

REPORT INFORMATION
  Report Type: Report from Study
  Country: US (occurrence: US)
  Receive Date: 20110802
  Receipt Date: 20130114
  Transmission Date: 20140127
  Serious: Yes (Hospitalization)
  Sender: FDA-Public Use
  Company Number: US-JNJFOC-20110711808

PATIENT
  Sex: Male
  Weight: 90.72 kg

DRUGS (7)
  1. REMICADE [Suspect]
     Indication: PSORIATIC ARTHROPATHY
     Dosage: FREQUENCY REPORTED AS EVERY 6-8 WEEKS, INITIATED IN 2008
     Route: 042
     Dates: start: 2008
  2. REMICADE [Suspect]
     Indication: PSORIATIC ARTHROPATHY
     Route: 042
     Dates: start: 20110623, end: 201205
  3. ENBREL [Suspect]
     Indication: PSORIATIC ARTHROPATHY
  4. HUMIRA [Suspect]
     Indication: PSORIATIC ARTHROPATHY
  5. PREDNISONE [Concomitant]
     Indication: DERMATOMYOSITIS
  6. PREDNISONE [Concomitant]
     Indication: DERMATOMYOSITIS
     Dates: start: 201104
  7. METHOTREXATE [Concomitant]
     Dates: start: 1986

REACTIONS (16)
  - Hepatic cirrhosis [Not Recovered/Not Resolved]
  - Monocyte count increased [Unknown]
  - Lupus-like syndrome [Unknown]
  - Anaemia [Unknown]
  - Loss of consciousness [Unknown]
  - Laboratory test abnormal [Unknown]
  - Glycosylated haemoglobin increased [Not Recovered/Not Resolved]
  - Tachycardia [Recovered/Resolved]
  - Dyspnoea [Recovered/Resolved]
  - Infusion related reaction [Recovered/Resolved]
  - Platelet disorder [Not Recovered/Not Resolved]
  - Dermatomyositis [Recovered/Resolved]
  - Muscle enzyme increased [Unknown]
  - Arthralgia [Unknown]
  - Fatigue [Recovered/Resolved]
  - White blood cell disorder [Not Recovered/Not Resolved]
